FAERS Safety Report 12683597 (Version 3)
Quarter: 2016Q4

REPORT INFORMATION
  Report Type: Report from Study
  Country: US (occurrence: US)
  Receive Date: 20160825
  Receipt Date: 20161007
  Transmission Date: 20170207
  Serious: Yes (Hospitalization, Other)
  Sender: FDA-Public Use
  Company Number: US-JNJFOC-20160722485

PATIENT
  Sex: Male

DRUGS (10)
  1. MORNIFLUMATE [Concomitant]
     Active Substance: MORNIFLUMATE
  2. TYLENOL [Concomitant]
     Active Substance: ACETAMINOPHEN
  3. OXYBUTYNIN [Concomitant]
     Active Substance: OXYBUTYNIN
  4. ONDANSETRON [Concomitant]
     Active Substance: ONDANSETRON
  5. LORAZEPAM. [Concomitant]
     Active Substance: LORAZEPAM
  6. DOCUSATE [Concomitant]
     Active Substance: DOCUSATE
  7. IMBRUVICA [Suspect]
     Active Substance: IBRUTINIB
     Indication: CHRONIC LYMPHOCYTIC LEUKAEMIA
     Route: 048
     Dates: start: 20151001
  8. ACETAMINOPHEN. [Concomitant]
     Active Substance: ACETAMINOPHEN
  9. METOPROLOL. [Concomitant]
     Active Substance: METOPROLOL
  10. DEXAMETHASONE. [Concomitant]
     Active Substance: DEXAMETHASONE

REACTIONS (5)
  - Pulmonary oedema [Unknown]
  - Cystitis [Unknown]
  - Hypotension [Recovered/Resolved]
  - Fluid retention [Unknown]
  - Hypertension [Unknown]
